FAERS Safety Report 7591808-2 (Version None)
Quarter: 2011Q3

REPORT INFORMATION
  Report Type: 
  Country: None (occurrence: None)
  Receive Date: 20110701
  Receipt Date: 20110701
  Transmission Date: 20111222
  Serious: Yes (Other)
  Sender: FDA-Public Use
  Company Number: None

PATIENT
  Age: 48 Year
  Sex: Female
  Weight: 54.4316 kg

DRUGS (1)
  1. LEVAQUIN [Suspect]
     Indication: URINARY TRACT INFECTION
     Dosage: 500MG 1XDAY PO
     Route: 048
     Dates: start: 20110118, end: 20110119

REACTIONS (8)
  - MUSCULAR WEAKNESS [None]
  - LIMB INJURY [None]
  - TENDON INJURY [None]
  - TINNITUS [None]
  - LIVER INJURY [None]
  - PAIN IN EXTREMITY [None]
  - NERVE INJURY [None]
  - VARICOSE VEIN [None]
